FAERS Safety Report 5970965-5 (Version None)
Quarter: 2008Q4

REPORT INFORMATION
  Report Type: 
  Country: None (occurrence: None)
  Receive Date: 20081128
  Receipt Date: 20081119
  Transmission Date: 20090506
  Serious: Yes (Hospitalization)
  Sender: FDA-Public Use
  Company Number: PHEH2008US10387

PATIENT
  Sex: Female

DRUGS (2)
  1. LOTREL [Suspect]
     Dosage: 10/20 MG
     Route: 048
  2. LOTREL [Suspect]
     Dosage: 10/40 MG
     Route: 048

REACTIONS (3)
  - DRUG DISPENSING ERROR [None]
  - NEPHROLITHIASIS [None]
  - PAIN [None]
